FAERS Safety Report 10181778 (Version 1)
Quarter: 2014Q2

REPORT INFORMATION
  Report Type: Spontaneous
  Country: GB (occurrence: GB)
  Receive Date: 20140519
  Receipt Date: 20140519
  Transmission Date: 20141212
  Serious: Yes (Other)
  Sender: FDA-Public Use
  Company Number: GB-MYLANLABS-2014S1010524

PATIENT
  Age: 47 Year
  Sex: Female
  Weight: 63.5 kg

DRUGS (7)
  1. SIMVASTATIN [Suspect]
     Indication: GLOMERULONEPHRITIS
     Route: 048
  2. OMEPRAZOLE [Concomitant]
  3. PARACETAMOL [Concomitant]
  4. AMITRIPTYLINE [Concomitant]
     Dosage: PROBABLY AT 60MG, BUT IT MAY HAVE BEEN 10MG DAILY
  5. TRAMADOL [Concomitant]
  6. LORATADINE [Concomitant]
  7. FUROSEMIDE [Concomitant]
     Dosage: 40MG, PROBABLY

REACTIONS (3)
  - Pain [Recovered/Resolved]
  - Hypokinesia [Recovered/Resolved with Sequelae]
  - Burning sensation [Recovered/Resolved]
